FAERS Safety Report 21996312 (Version 1)
Quarter: 2023Q1

REPORT INFORMATION
  Report Type: Spontaneous
  Country: IT (occurrence: IT)
  Receive Date: 20230215
  Receipt Date: 20230215
  Transmission Date: 20230418
  Serious: Yes (Other)
  Sender: FDA-Public Use
  Company Number: IT-ELI_LILLY_AND_COMPANY-IT202302001800

PATIENT
  Age: 67 Year
  Sex: Female

DRUGS (7)
  1. TRULICITY [Suspect]
     Active Substance: DULAGLUTIDE
     Indication: Product used for unknown indication
     Dosage: 0.75 MG, UNKNOWN
     Route: 065
     Dates: start: 202211
  2. RAMIPRIL [Concomitant]
     Active Substance: RAMIPRIL
     Indication: Hypertension
  3. NEBIVOLOL HYDROCHLORIDE [Concomitant]
     Active Substance: NEBIVOLOL HYDROCHLORIDE
     Indication: Hypertension
  4. AMLODIPINE [Concomitant]
     Active Substance: AMLODIPINE BESYLATE
     Indication: Hypertension
  5. ALDACTONE [Concomitant]
     Active Substance: SPIRONOLACTONE
     Indication: Hypertension
  6. DELORAZEPAM [Concomitant]
     Active Substance: DELORAZEPAM
  7. ATARAX [Concomitant]
     Active Substance: HYDROXYZINE HYDROCHLORIDE
     Indication: Insomnia

REACTIONS (14)
  - Hypoaesthesia [Unknown]
  - Hypertensive cardiomyopathy [Unknown]
  - Retinopathy [Unknown]
  - Somnolence [Unknown]
  - Headache [Unknown]
  - Hot flush [Unknown]
  - Fall [Unknown]
  - Injury [Unknown]
  - Feeling abnormal [Unknown]
  - Musculoskeletal stiffness [Unknown]
  - Nausea [Unknown]
  - Fatigue [Unknown]
  - Abdominal pain [Unknown]
  - Constipation [Unknown]

NARRATIVE: CASE EVENT DATE: 20230202
